FAERS Safety Report 23568476 (Version 1)
Quarter: 2024Q1

REPORT INFORMATION
  Report Type: Spontaneous
  Country: NL (occurrence: NL)
  Receive Date: 20240227
  Receipt Date: 20240227
  Transmission Date: 20240410
  Serious: Yes (Hospitalization)
  Sender: FDA-Public Use
  Company Number: NL-LRB-00945165

PATIENT
  Age: 75 Year
  Sex: Female
  Weight: 55.1 kg

DRUGS (17)
  1. METOPROLOL [Suspect]
     Active Substance: METOPROLOL
     Indication: Palpitations
     Dosage: 25 MILLIGRAM, ONCE A DAY (25MG 1DD1)
     Route: 065
     Dates: start: 20240125
  2. METOPROLOL [Suspect]
     Active Substance: METOPROLOL
     Indication: Myocardial ischaemia
  3. PANTOPRAZOLE SODIUM [Concomitant]
     Active Substance: PANTOPRAZOLE SODIUM
     Indication: Product used for unknown indication
     Dosage: 40 MILLIGRAM (GASTRO-RESISTANT TABLET, 40 MG (MILLIGRAM))
     Route: 065
  4. ATROVENT [Concomitant]
     Active Substance: IPRATROPIUM BROMIDE
     Indication: Product used for unknown indication
     Dosage: 20 MICROGRAM (AEROSOL, 20 ?G/DOSE (MICROGRAMS PER DOSE))
     Route: 065
  5. ACETYLCYSTEINE [Concomitant]
     Active Substance: ACETYLCYSTEINE
     Indication: Product used for unknown indication
     Dosage: 600 MILLIGRAM (EFFERVESCENT TABLET, 600 MG (MILLIGRAM))
     Route: 065
  6. CLOPIDOGREL [Concomitant]
     Active Substance: CLOPIDOGREL BISULFATE
     Indication: Product used for unknown indication
     Dosage: 75 MILLIGRAM (TABLET, 75 MG (MILLIGRAM)  )
     Route: 065
  7. MOVICOLON [Concomitant]
     Active Substance: POLYETHYLENE GLYCOL 3350\POTASSIUM CHLORIDE\SODIUM BICARBONATE\SODIUM CHLORIDE
     Indication: Product used for unknown indication
     Dosage: UNK (POWDER FOR DRINK)
     Route: 065
  8. ACETAMINOPHEN [Concomitant]
     Active Substance: ACETAMINOPHEN
     Indication: Product used for unknown indication
     Dosage: 500 MILLIGRAM (TABLET, 500 MG (MILLIGRAM) )
     Route: 065
  9. PREDNISONE [Concomitant]
     Active Substance: PREDNISONE
     Indication: Product used for unknown indication
     Dosage: 5 MILLIGRAM (TABLET, 5 MG (MILLIGRAM))
     Route: 065
  10. ASPIRIN [Concomitant]
     Active Substance: ASPIRIN
     Indication: Product used for unknown indication
     Dosage: 80 MILLIGRAM (TABLET, 80 MG (MILLIGRAM))
     Route: 065
  11. CODEINE [Concomitant]
     Active Substance: CODEINE
     Indication: Product used for unknown indication
     Dosage: 10 MILLIGRAM (TABLET, 10 MG (MILLIGRAM) )
     Route: 065
  12. CANDESARTAN [Concomitant]
     Active Substance: CANDESARTAN
     Indication: Product used for unknown indication
     Dosage: 4 MILLIGRAM (TABLET, 4 MG (MILLIGRAM) )
     Route: 065
  13. BUDESONIDE [Concomitant]
     Active Substance: BUDESONIDE
     Indication: Product used for unknown indication
     Dosage: 200 MICROGRAM (AEROSOL, 200 ?G/DOSE (MICROGRAMS PER DOSE))
     Route: 065
  14. OXAZEPAM [Concomitant]
     Active Substance: OXAZEPAM
     Indication: Product used for unknown indication
     Dosage: 10 MILLIGRAM (TABLET, 10 MG (MILLIGRAM))
     Route: 065
  15. MAGNESIUM HYDROXIDE [Concomitant]
     Active Substance: MAGNESIUM HYDROXIDE
     Indication: Product used for unknown indication
     Dosage: 724 MILLIGRAM (CHEWABLE TABLET, 724 MG (MILLIGRAM))
     Route: 065
  16. SIMVASTATIN [Concomitant]
     Active Substance: SIMVASTATIN
     Indication: Product used for unknown indication
     Dosage: 40 MILLIGRAM (FILM-COATED TABLET, 40 MG (MILLIGRAM))
     Route: 065
  17. ALBUTEROL [Concomitant]
     Active Substance: ALBUTEROL
     Indication: Product used for unknown indication
     Dosage: 100 MICROGRAM (AEROSOL, 100 ?G/DOSE (MICROGRAMS PER DOSE))
     Route: 065

REACTIONS (4)
  - Dizziness [Not Recovered/Not Resolved]
  - Hypotension [Not Recovered/Not Resolved]
  - Palpitations [Not Recovered/Not Resolved]
  - Malaise [Not Recovered/Not Resolved]
